FAERS Safety Report 13292347 (Version 2)
Quarter: 2017Q1

REPORT INFORMATION
  Report Type: Spontaneous
  Country: US (occurrence: US)
  Receive Date: 20170303
  Receipt Date: 20170328
  Transmission Date: 20170428
  Serious: Yes (Other)
  Sender: FDA-Public Use
  Company Number: US-BAYER-2017-038038

PATIENT
  Age: 26 Year
  Sex: Female

DRUGS (1)
  1. MIRENA [Suspect]
     Active Substance: LEVONORGESTREL
     Dosage: 20 MCG/24HR, CONT
     Route: 015
     Dates: end: 20170224

REACTIONS (4)
  - Embedded device [Unknown]
  - Device difficult to use [Unknown]
  - Medical device monitoring error [Unknown]
  - Medical device removal [Unknown]

NARRATIVE: CASE EVENT DATE: 20170224
